FAERS Safety Report 13665461 (Version 3)
Quarter: 2019Q4

REPORT INFORMATION
  Report Type: Spontaneous
  Country: US (occurrence: US)
  Receive Date: 20170619
  Receipt Date: 20191206
  Transmission Date: 20200122
  Serious: Yes (Other)
  Sender: FDA-Public Use
  Company Number: US-UCBSA-2017023162

PATIENT
  Age: 44 Year
  Sex: Female

DRUGS (1)
  1. CIMZIA [Suspect]
     Active Substance: CERTOLIZUMAB PEGOL
     Indication: PRODUCT USED FOR UNKNOWN INDICATION
     Dosage: STRENGTH: 200 MG/ML
     Dates: end: 2017

REACTIONS (2)
  - Gastroenteritis [Unknown]
  - Sinusitis [Unknown]

NARRATIVE: CASE EVENT DATE: 20170531
